APPROVED DRUG PRODUCT: VOGELXO
Active Ingredient: TESTOSTERONE
Strength: 50MG/5GM PACKET
Dosage Form/Route: GEL;TRANSDERMAL
Application: N204399 | Product #002 | TE Code: AB2
Applicant: UPSHER SMITH LABORATORIES LLC
Approved: Jun 4, 2014 | RLD: No | RS: No | Type: RX

PATENTS:
Patent 8785426 | Expires: Feb 11, 2034
Patent 9662340 | Expires: Feb 11, 2034
Patent 9295675 | Expires: Feb 11, 2034